FAERS Safety Report 5407964-8 (Version None)
Quarter: 2007Q3

REPORT INFORMATION
  Report Type: 
  Country: None (occurrence: None)
  Receive Date: 20070803
  Receipt Date: 20070723
  Transmission Date: 20080115
  Serious: Yes (Hospitalization)
  Sender: FDA-Public Use
  Company Number: 013053

PATIENT
  Age: 51 Year
  Sex: Female

DRUGS (2)
  1. PRIALT [Suspect]
     Indication: ARACHNOIDITIS
     Dosage: UG, ONCE/HOUR, INTRATHECAL
     Route: 037
     Dates: start: 20070213
  2. DILAUDID [Suspect]
     Indication: ARACHNOIDITIS
     Dosage: INTRATHECAL
     Route: 037

REACTIONS (10)
  - DEVICE RELATED INFECTION [None]
  - HALLUCINATION, AUDITORY [None]
  - IMPLANT SITE REACTION [None]
  - INSOMNIA [None]
  - MENINGITIS [None]
  - OEDEMA PERIPHERAL [None]
  - PAIN [None]
  - PNEUMONIA [None]
  - SEPSIS [None]
  - WEIGHT INCREASED [None]
